FAERS Safety Report 8143551-9 (Version None)
Quarter: 2012Q1

REPORT INFORMATION
  Report Type: 
  Country: None (occurrence: None)
  Receive Date: 20120217
  Receipt Date: 20111101
  Transmission Date: 20120608
  Serious: Yes (Hospitalization)
  Sender: FDA-Public Use
  Company Number: US-GLAXOSMITHKLINE-A0885247A

PATIENT
  Age: 72 Year
  Sex: Male

DRUGS (2)
  1. SYNTHROID [Concomitant]
  2. VOTRIENT [Suspect]
     Indication: RENAL CELL CARCINOMA
     Dosage: 800MG PER DAY
     Route: 048
     Dates: start: 20100908

REACTIONS (4)
  - NAUSEA [None]
  - DIARRHOEA [None]
  - FATIGUE [None]
  - HEADACHE [None]
